FAERS Safety Report 17659816 (Version 1)
Quarter: 2020Q2

REPORT INFORMATION
  Report Type: Report from Study
  Country: RO (occurrence: RO)
  Receive Date: 20200413
  Receipt Date: 20200413
  Transmission Date: 20200713
  Serious: Yes (Hospitalization, Other)
  Sender: FDA-Public Use
  Company Number: RO-GILEAD-2020-0455070

PATIENT
  Age: 73 Year
  Sex: Male

DRUGS (5)
  1. LEDIPASVIR/SOFOSBUVIR [Suspect]
     Active Substance: LEDIPASVIR\SOFOSBUVIR
     Indication: HEPATITIS C
     Dosage: 1 DOSAGE FORM, QD
     Route: 048
     Dates: start: 20200220, end: 20200308
  2. CLEXANE [Suspect]
     Active Substance: ENOXAPARIN SODIUM
     Dosage: 2 INJECTIONS, QD
     Route: 051
     Dates: start: 20200220
  3. LEDIPASVIR/SOFOSBUVIR [Suspect]
     Active Substance: LEDIPASVIR\SOFOSBUVIR
     Indication: HEPATIC CIRRHOSIS
  4. CLEXANE [Suspect]
     Active Substance: ENOXAPARIN SODIUM
     Indication: COAGULOPATHY
     Dosage: 4 INJECTIONS, QD
     Route: 051
     Dates: start: 20200225
  5. TROMBOSTOP [Concomitant]
     Active Substance: ACENOCOUMAROL

REACTIONS (9)
  - Peripheral swelling [Recovering/Resolving]
  - Dyspnoea [Recovering/Resolving]
  - Mouth haemorrhage [Recovering/Resolving]
  - Monoplegia [Not Recovered/Not Resolved]
  - Haemoptysis [Recovering/Resolving]
  - Intentional product misuse [Recovered/Resolved]
  - Movement disorder [Recovering/Resolving]
  - International normalised ratio decreased [Unknown]
  - Renal impairment [Not Recovered/Not Resolved]

NARRATIVE: CASE EVENT DATE: 202002
